FAERS Safety Report 4530346-8 (Version None)
Quarter: 2004Q4

REPORT INFORMATION
  Report Type: 
  Country: None (occurrence: None)
  Receive Date: 20041215
  Receipt Date: 20041130
  Transmission Date: 20050328
  Serious: Yes (Hospitalization)
  Sender: FDA-Public Use
  Company Number: 2004BI000437

PATIENT
  Age: 73 Year
  Sex: Male
  Weight: 95 kg

DRUGS (6)
  1. AMEVIVE (ALEFACEPT) [Suspect]
     Indication: PSORIATIC ARTHROPATHY
     Dosage: 7.5 MG;QW;IV
     Route: 042
     Dates: start: 20040706, end: 20040907
  2. PANTOPRAZOLE SODIUM [Concomitant]
  3. ARICEPT [Concomitant]
  4. THROMBO ASS [Concomitant]
  5. DITROPAN [Concomitant]
  6. METFORMIN HCL [Concomitant]

REACTIONS (4)
  - ELECTROLYTE IMBALANCE [None]
  - HYPERKALAEMIA [None]
  - LACTIC ACIDOSIS [None]
  - METABOLIC DISORDER [None]
